FAERS Safety Report 4744208-4 (Version None)
Quarter: 2005Q3

REPORT INFORMATION
  Report Type: 
  Country: None (occurrence: None)
  Receive Date: 20050810
  Receipt Date: 20050810
  Transmission Date: 20060218
  Serious: Yes (Other)
  Sender: FDA-Public Use
  Company Number: None

PATIENT
  Age: 24 Year
  Sex: Female
  Weight: 69.8539 kg

DRUGS (2)
  1. PREVACID [Suspect]
     Indication: GASTROOESOPHAGEAL REFLUX DISEASE
     Dosage: 30 MG 1 QD PO
     Route: 048
     Dates: start: 20050805, end: 20050807
  2. PREVACID [Suspect]
     Indication: PEPTIC ULCER
     Dosage: 30 MG 1 QD PO
     Route: 048
     Dates: start: 20050805, end: 20050807

REACTIONS (3)
  - HEART RATE INCREASED [None]
  - RASH ERYTHEMATOUS [None]
  - RASH PRURITIC [None]
